FAERS Safety Report 24558064 (Version 2)
Quarter: 2025Q4

REPORT INFORMATION
  Report Type: Report from Study
  Country: CO (occurrence: CO)
  Receive Date: 20241028
  Receipt Date: 20251122
  Transmission Date: 20260117
  Serious: Yes (Death, Other)
  Sender: TAKEDA
  Company Number: CO-TAKEDA-2023TUS014235

PATIENT
  Age: 52 Year
  Sex: Female
  Weight: 52 kg

DRUGS (5)
  1. PONATINIB [Suspect]
     Active Substance: PONATINIB
     Indication: Chronic myeloid leukaemia
     Dosage: 45 MILLIGRAM, QD
     Dates: start: 20220830
  2. PONATINIB [Suspect]
     Active Substance: PONATINIB
     Dosage: 30 MILLIGRAM, QD
  3. PONATINIB [Suspect]
     Active Substance: PONATINIB
     Dosage: 30 MILLIGRAM, QD
  4. PONATINIB [Suspect]
     Active Substance: PONATINIB
     Dosage: 15 MILLIGRAM, QD
     Dates: start: 20231018, end: 20251119
  5. HYDROXYUREA [Concomitant]
     Active Substance: HYDROXYUREA
     Dosage: 500 MILLIGRAM, Q12H
     Dates: start: 20230313

REACTIONS (12)
  - Cardio-respiratory arrest [Fatal]
  - Normocytic anaemia [Unknown]
  - Cytopenia [Unknown]
  - Leukopenia [Unknown]
  - Anaemia [Unknown]
  - Cardiac failure [Unknown]
  - Neutropenia [Unknown]
  - Blood pressure decreased [Unknown]
  - Chest pain [Unknown]
  - Splenomegaly [Unknown]
  - Thrombocytosis [Unknown]
  - Leukocytosis [Unknown]

NARRATIVE: CASE EVENT DATE: 20230206
